FAERS Safety Report 6784514-5 (Version None)
Quarter: 2010Q2

REPORT INFORMATION
  Report Type: 
  Country: None (occurrence: None)
  Receive Date: 20100622
  Receipt Date: 20100617
  Transmission Date: 20101027
  Serious: Yes (Hospitalization)
  Sender: FDA-Public Use
  Company Number: US-BRISTOL-MYERS SQUIBB COMPANY-15084478

PATIENT
  Age: 58 Year
  Sex: Male

DRUGS (4)
  1. BLINDED (ABATACEPT) [Suspect]
  2. MELOXICAM [Concomitant]
     Route: 048
     Dates: start: 20081101, end: 20100425
  3. FOLIC ACID [Concomitant]
     Route: 048
     Dates: start: 20081101, end: 20100425
  4. METHOTREXATE [Suspect]
     Dates: start: 20081101, end: 20100425

REACTIONS (5)
  - ANAEMIA [None]
  - DIARRHOEA [None]
  - PYREXIA [None]
  - RHEUMATOID ARTHRITIS [None]
  - STOMATITIS [None]
